FAERS Safety Report 18193231 (Version 3)
Quarter: 2021Q2

REPORT INFORMATION
  Report Type: Spontaneous
  Country: US (occurrence: US)
  Receive Date: 20200825
  Receipt Date: 20210520
  Transmission Date: 20210717
  Serious: Yes (Death, Hospitalization, Other)
  Sender: FDA-Public Use
  Company Number: US-PFIZER INC-2020326857

PATIENT
  Age: 76 Year
  Sex: Female
  Weight: 54.43 kg

DRUGS (1)
  1. VYNDAMAX [Suspect]
     Active Substance: TAFAMIDIS
     Indication: CARDIAC AMYLOIDOSIS
     Dosage: 61MG, 1 CAPSULE DAILY
     Route: 048
     Dates: start: 202001, end: 20200718

REACTIONS (9)
  - Diarrhoea [Not Recovered/Not Resolved]
  - Cardiac failure [Unknown]
  - Vomiting [Not Recovered/Not Resolved]
  - Hyponatraemia [Not Recovered/Not Resolved]
  - Helicobacter gastritis [Unknown]
  - Cardiorenal syndrome [Unknown]
  - Death [Fatal]
  - Nausea [Not Recovered/Not Resolved]
  - Acute kidney injury [Unknown]

NARRATIVE: CASE EVENT DATE: 2020
